FAERS Safety Report 24454336 (Version 2)
Quarter: 2024Q4

REPORT INFORMATION
  Report Type: Spontaneous
  Country: CA (occurrence: CA)
  Receive Date: 20241017
  Receipt Date: 20241018
  Transmission Date: 20250114
  Serious: No
  Sender: ROCHE
  Company Number: CA-ROCHE-3435330

PATIENT
  Sex: Female

DRUGS (1)
  1. RITUXIMAB [Suspect]
     Active Substance: RITUXIMAB
     Indication: Product used for unknown indication
     Dosage: LAST DOSE ON MAR/2023
     Route: 065
     Dates: start: 202108

REACTIONS (5)
  - Drug hypersensitivity [Unknown]
  - Dermatitis contact [Unknown]
  - Optic neuritis [Unknown]
  - Blood immunoglobulin G decreased [Unknown]
  - Blood immunoglobulin A decreased [Unknown]
